FAERS Safety Report 10258976 (Version 2)
Quarter: 2016Q3

REPORT INFORMATION
  Report Type: Spontaneous
  Country: US (occurrence: US)
  Receive Date: 20140625
  Receipt Date: 20160831
  Transmission Date: 20161109
  Serious: Yes (Other)
  Sender: FDA-Public Use
  Company Number: US-GLAXOSMITHKLINE-A0963832A

PATIENT
  Age: 44 Year
  Sex: Female
  Weight: 64.1 kg

DRUGS (16)
  1. PLAQUENIL [Concomitant]
     Active Substance: HYDROXYCHLOROQUINE SULFATE
     Indication: SYSTEMIC LUPUS ERYTHEMATOSUS
     Route: 048
  2. AMITRIPTYLINE [Concomitant]
     Active Substance: AMITRIPTYLINE
  3. TYLENOL [Concomitant]
     Active Substance: ACETAMINOPHEN
  4. BENLYSTA [Suspect]
     Active Substance: BELIMUMAB
     Indication: SYSTEMIC LUPUS ERYTHEMATOSUS
     Route: 042
     Dates: start: 201110, end: 201310
  5. SYNTHROID [Concomitant]
     Active Substance: LEVOTHYROXINE SODIUM
  6. ALBUTEROL. [Concomitant]
     Active Substance: ALBUTEROL
  7. LEVOTHYROXINE. [Concomitant]
     Active Substance: LEVOTHYROXINE
     Indication: HYPOTHYROIDISM
     Route: 048
  8. ZOVIRAX [Concomitant]
     Active Substance: ACYCLOVIR
  9. CLARITIN D 24 HR [Concomitant]
     Indication: ASTHMA
     Route: 048
  10. LEVSIN [Concomitant]
     Active Substance: HYOSCYAMINE SULFATE
  11. VICODIN [Concomitant]
     Active Substance: ACETAMINOPHEN\HYDROCODONE BITARTRATE
  12. KLONOPIN [Concomitant]
     Active Substance: CLONAZEPAM
  13. VIVELLE-DOT [Concomitant]
     Active Substance: ESTRADIOL
  14. LASIX [Concomitant]
     Active Substance: FUROSEMIDE
  15. BENLYSTA [Suspect]
     Active Substance: BELIMUMAB
     Dosage: UNK
     Dates: end: 2014
  16. PROTONIX [Concomitant]
     Active Substance: PANTOPRAZOLE SODIUM
     Indication: GASTROOESOPHAGEAL REFLUX DISEASE
     Route: 048

REACTIONS (9)
  - Mycobacterium chelonae infection [Not Recovered/Not Resolved]
  - Feeling hot [Not Recovered/Not Resolved]
  - Movement disorder [Not Recovered/Not Resolved]
  - Limb operation [Not Recovered/Not Resolved]
  - Headache [Recovered/Resolved]
  - Bacterial infection [Not Recovered/Not Resolved]
  - Erythema [Not Recovered/Not Resolved]
  - Adverse event [Unknown]
  - Peripheral swelling [Not Recovered/Not Resolved]

NARRATIVE: CASE EVENT DATE: 20111117
